FAERS Safety Report 18632785 (Version 1)
Quarter: 2020Q4

REPORT INFORMATION
  Report Type: Spontaneous
  Country: GB (occurrence: GB)
  Receive Date: 20201218
  Receipt Date: 20201218
  Transmission Date: 20210114
  Serious: Yes (Other)
  Sender: FDA-Public Use
  Company Number: GB-ACCORD-211329

PATIENT
  Age: 81 Year
  Sex: Male
  Weight: 57 kg

DRUGS (14)
  1. SALBUTAMOL [Concomitant]
     Active Substance: ALBUTEROL
     Dates: start: 20190529
  2. CLENIL MODULITE [Concomitant]
     Active Substance: BECLOMETHASONE DIPROPIONATE
     Dates: start: 20190529
  3. BETNOVATE [Concomitant]
     Active Substance: BETAMETHASONE
     Dosage: FOR 1 WEEK
     Dates: start: 20201008, end: 20201105
  4. AZELASTINE/AZELASTINE HYDROCHLORIDE [Concomitant]
     Dosage: SPRAYS
     Dates: start: 20190529
  5. APIXABAN [Suspect]
     Active Substance: APIXABAN
     Indication: PRODUCT USED FOR UNKNOWN INDICATION
     Route: 048
     Dates: start: 20200907, end: 20201201
  6. FLUAD NOS [Concomitant]
     Active Substance: INFLUENZA VIRUS VACCINE
     Indication: INFLUENZA IMMUNISATION
     Dates: start: 20201002, end: 20201002
  7. CO-AMOXICLAV [Concomitant]
     Active Substance: AMOXICILLIN\CLAVULANATE POTASSIUM
     Dates: start: 20201123, end: 20201130
  8. DIGOXIN. [Concomitant]
     Active Substance: DIGOXIN
     Dates: start: 20190529
  9. WARFARIN [Concomitant]
     Active Substance: WARFARIN
     Dosage: USE AS DIRECTED
     Dates: start: 20190529
  10. CETIRIZINE/CETIRIZINE HYDROCHLORIDE [Concomitant]
     Active Substance: CETIRIZINE HYDROCHLORIDE
     Dates: start: 20200918, end: 20201018
  11. DERMOL [Concomitant]
     Active Substance: BENZALKONIUM CHLORIDE\CHLORHEXIDINE HYDROCHLORIDE\ISOPROPYL MYRISTATE\PARAFFIN
     Dosage: USE AS DIRECTED
     Dates: start: 20201008, end: 20201015
  12. SIMVASTATIN. [Concomitant]
     Active Substance: SIMVASTATIN
     Dosage: AT NIGHT
     Dates: start: 20190529
  13. FEXOFENADINE [Concomitant]
     Active Substance: FEXOFENADINE HYDROCHLORIDE
     Dates: start: 20200921, end: 20201021
  14. FLUTICASONE. [Concomitant]
     Active Substance: FLUTICASONE
     Dosage: USE AS DIRECTED
     Dates: start: 20190529

REACTIONS (1)
  - Dermatitis bullous [Recovered/Resolved]

NARRATIVE: CASE EVENT DATE: 20201201
